FAERS Safety Report 9905871 (Version 1)
Quarter: 2014Q1

REPORT INFORMATION
  Report Type: Spontaneous
  Country: FR (occurrence: FR)
  Receive Date: 20140218
  Receipt Date: 20140218
  Transmission Date: 20141002
  Serious: Yes (Other)
  Sender: FDA-Public Use
  Company Number: FR-ASTRAZENECA-2014SE10452

PATIENT
  Age: 20 Year
  Sex: Male

DRUGS (9)
  1. XEROQUEL [Suspect]
     Route: 048
     Dates: start: 20131026
  2. TERCIAN [Suspect]
     Route: 048
  3. PROZAC [Suspect]
     Route: 048
     Dates: start: 20120329
  4. ABILIFY [Concomitant]
     Dates: end: 201211
  5. LOXAPAC [Concomitant]
  6. TRANXENE [Concomitant]
  7. NOCTAMIDE [Concomitant]
  8. ATARAX [Concomitant]
  9. ALPRAZOLAM [Concomitant]

REACTIONS (3)
  - Productive cough [Not Recovered/Not Resolved]
  - Salivary hypersecretion [Not Recovered/Not Resolved]
  - Dysphagia [Not Recovered/Not Resolved]
